FAERS Safety Report 13561181 (Version 1)
Quarter: 2017Q2

REPORT INFORMATION
  Report Type: Spontaneous
  Country: US (occurrence: US)
  Receive Date: 20170518
  Receipt Date: 20170518
  Transmission Date: 20170830
  Serious: Yes (Hospitalization)
  Sender: FDA-Public Use
  Company Number: US-SA-2017SA087707

PATIENT
  Age: 62 Year
  Sex: Male
  Weight: 108.8 kg

DRUGS (4)
  1. LANTUS [Suspect]
     Active Substance: INSULIN GLARGINE
     Indication: TYPE 2 DIABETES MELLITUS
     Route: 058
  2. JANUVIA [Suspect]
     Active Substance: SITAGLIPTIN PHOSPHATE
     Indication: TYPE 2 DIABETES MELLITUS
     Route: 048
  3. NOVOLOG [Suspect]
     Active Substance: INSULIN ASPART
     Indication: TYPE 2 DIABETES MELLITUS
     Dosage: DOSE:100 UNIT(S)
     Route: 058
  4. NOVOLOG [Suspect]
     Active Substance: INSULIN ASPART
     Indication: TYPE 2 DIABETES MELLITUS
     Dosage: FERQUENCY: BID IN THE MORNING AND EVENING DOSE:60 UNIT(S)
     Route: 058

REACTIONS (13)
  - Brain oedema [Recovered/Resolved]
  - Brain stem thrombosis [Recovered/Resolved]
  - Nausea [Recovered/Resolved]
  - Impaired work ability [Unknown]
  - Brain stem stroke [Recovered/Resolved with Sequelae]
  - Nervous system disorder [Unknown]
  - Accelerated hypertension [Unknown]
  - Dysphagia [Recovered/Resolved with Sequelae]
  - Dizziness [Unknown]
  - Dysmetria [Not Recovered/Not Resolved]
  - Hyperhidrosis [Recovered/Resolved]
  - Vocal cord disorder [Unknown]
  - Visual impairment [Recovered/Resolved with Sequelae]

NARRATIVE: CASE EVENT DATE: 201508
